FAERS Safety Report 16725540 (Version 5)
Quarter: 2020Q2

REPORT INFORMATION
  Report Type: Spontaneous
  Country: US (occurrence: US)
  Receive Date: 20190821
  Receipt Date: 20200414
  Transmission Date: 20200713
  Serious: No
  Sender: FDA-Public Use
  Company Number: US-BIOGEN-2019BI00777003

PATIENT
  Age: 39 Year
  Sex: Female

DRUGS (3)
  1. TECFIDERA [Suspect]
     Active Substance: DIMETHYL FUMARATE
     Indication: MULTIPLE SCLEROSIS
     Route: 065
     Dates: start: 20190805, end: 20190811
  2. TECFIDERA [Interacting]
     Active Substance: DIMETHYL FUMARATE
     Route: 048
     Dates: start: 20190812
  3. MODAFINIL. [Interacting]
     Active Substance: MODAFINIL
     Indication: FATIGUE
     Route: 065

REACTIONS (15)
  - Diarrhoea [Recovered/Resolved]
  - Chest discomfort [Not Recovered/Not Resolved]
  - Back pain [Unknown]
  - Inhibitory drug interaction [Unknown]
  - Flushing [Not Recovered/Not Resolved]
  - Abdominal pain [Recovered/Resolved]
  - Product dose omission [Unknown]
  - Fatigue [Not Recovered/Not Resolved]
  - Rash [Recovered/Resolved]
  - Asthenia [Unknown]
  - Hypersensitivity [Not Recovered/Not Resolved]
  - Hot flush [Recovered/Resolved]
  - Throat tightness [Not Recovered/Not Resolved]
  - Dyspnoea [Unknown]
  - Cough [Recovered/Resolved]

NARRATIVE: CASE EVENT DATE: 20190831
